FAERS Safety Report 13002279 (Version 3)
Quarter: 2017Q1

REPORT INFORMATION
  Report Type: Spontaneous
  Country: US (occurrence: US)
  Receive Date: 20161206
  Receipt Date: 20170324
  Transmission Date: 20170428
  Serious: No
  Sender: FDA-Public Use
  Company Number: US-PFIZER INC-2016563635

PATIENT
  Age: 80 Year
  Sex: Female

DRUGS (30)
  1. PROBIOTICS [Suspect]
     Active Substance: PROBIOTICS NOS
     Dosage: UNK UNK, 1X/DAY
     Dates: start: 20170312
  2. LASIX [Concomitant]
     Active Substance: FUROSEMIDE
     Dosage: 40 MG, 2X/DAY
     Route: 048
     Dates: start: 201203
  3. NOVOLOG [Concomitant]
     Active Substance: INSULIN ASPART
     Dosage: 100 IU/ML, 2X/DAY (BEFORE MEAL)
     Route: 058
     Dates: start: 200612
  4. PRINIVIL [Concomitant]
     Active Substance: LISINOPRIL
     Dosage: 2.5 MG, 1X/DAY
     Dates: start: 201609
  5. TIKOSYN [Suspect]
     Active Substance: DOFETILIDE
     Indication: SINUS NODE DYSFUNCTION
     Dosage: 250 UG, 2X/DAY
     Route: 048
     Dates: start: 20160910
  6. IMURAN [Concomitant]
     Active Substance: AZATHIOPRINE
     Dosage: 50 MG, DAILY
     Route: 048
     Dates: start: 199701
  7. ALPHAGAN P [Concomitant]
     Active Substance: BRIMONIDINE TARTRATE
     Dosage: 1 GTT, 3X/DAY
     Route: 047
     Dates: start: 199707
  8. PLAVIX [Concomitant]
     Active Substance: CLOPIDOGREL BISULFATE
     Dosage: 75 MG, DAILY
     Route: 048
     Dates: start: 201203, end: 201611
  9. PROTONIX [Concomitant]
     Active Substance: PANTOPRAZOLE SODIUM
     Dosage: 40 MG, DAILY
     Route: 048
     Dates: start: 201407
  10. ACCUNEB [Concomitant]
     Active Substance: ALBUTEROL SULFATE
     Indication: WHEEZING
     Dosage: 1 DF, AS NEEDED (1.25 MG/3 ML) (TAKE 1 AMPULE BY NEBULIZATION EVERY 6 (SIX) HOURS )
     Route: 045
     Dates: start: 201204
  11. SYMBICORT [Concomitant]
     Active Substance: BUDESONIDE\FORMOTEROL FUMARATE DIHYDRATE
     Dosage: 2 DF, 2X/DAY  (BUDESONIDE (160 MCG)/ FORMOTEROL FUMARATE (4.5 MCG) (INHALE 2 PUFFS INTO THE LUNGS)
     Route: 055
     Dates: start: 201204
  12. LANOXIN [Concomitant]
     Active Substance: DIGOXIN
     Dosage: 125 UG, DAILY
     Route: 048
     Dates: start: 201203
  13. PRINIVIL [Concomitant]
     Active Substance: LISINOPRIL
     Dosage: 2.5 MG, DAILY
     Route: 048
  14. TOPROL XL [Concomitant]
     Active Substance: METOPROLOL SUCCINATE
     Dosage: 25 MG, DAILY
     Route: 048
     Dates: start: 201203
  15. COENZYME Q10 [Concomitant]
     Active Substance: UBIDECARENONE
     Dosage: 10 MG, DAILY
     Route: 048
     Dates: start: 201204
  16. CEPHALEXIN. [Suspect]
     Active Substance: CEPHALEXIN
     Indication: TOOTH INFECTION
     Dosage: UNK
     Dates: start: 20161007
  17. VITAMIN D3 [Concomitant]
     Active Substance: CHOLECALCIFEROL
     Dosage: 185 MG, DAILY
     Route: 048
     Dates: start: 201209
  18. PRAVACHOL [Concomitant]
     Active Substance: PRAVASTATIN SODIUM
     Dosage: 40 MG, DAILY
     Route: 048
     Dates: start: 200601
  19. TIKOSYN [Suspect]
     Active Substance: DOFETILIDE
     Indication: ATRIAL FIBRILLATION
  20. CYANOCOBALAMIN. [Concomitant]
     Active Substance: CYANOCOBALAMIN
     Dosage: 1000 UG, DAILY
     Route: 048
     Dates: start: 201206
  21. ZESTRIL [Concomitant]
     Active Substance: LISINOPRIL
     Dosage: 2.5 MG, 1X/DAY
     Dates: start: 201609
  22. LUTEIN [Concomitant]
     Active Substance: LUTEIN
     Dosage: 20 MG, UNK
     Route: 048
     Dates: start: 200608
  23. KLOR-CON [Concomitant]
     Active Substance: POTASSIUM CHLORIDE
     Dosage: 20 MEQ, 2X/DAY
     Route: 048
     Dates: start: 201203
  24. CIPROFLOXACIN. [Suspect]
     Active Substance: CIPROFLOXACIN
     Dosage: 250 MG, 2X/DAY
     Dates: start: 20170306, end: 20170311
  25. ALBUTEROL SULFATE. [Concomitant]
     Active Substance: ALBUTEROL SULFATE
     Dosage: UNK (90 MCG/ACTUATION AEROSOL)
     Route: 055
     Dates: start: 201204
  26. DELTASONE [Concomitant]
     Active Substance: PREDNISONE
     Dosage: 5 MG, DAILY
     Route: 048
     Dates: start: 2000
  27. ZESTRIL [Concomitant]
     Active Substance: LISINOPRIL
     Dosage: 2.5 MG, DAILY
  28. TIKOSYN [Suspect]
     Active Substance: DOFETILIDE
     Indication: VENTRICULAR TACHYCARDIA
     Dosage: 250 UG, 2X/DAY
     Dates: start: 20161128
  29. APIXABAN [Concomitant]
     Active Substance: APIXABAN
     Dosage: 5 MG, UNK
     Route: 048
     Dates: start: 201609
  30. FOLVITE [Concomitant]
     Active Substance: FOLIC ACID
     Dosage: 1 MG, DAILY
     Route: 048
     Dates: start: 2000

REACTIONS (2)
  - Dysphonia [Not Recovered/Not Resolved]
  - Nasopharyngitis [Recovered/Resolved]

NARRATIVE: CASE EVENT DATE: 201611
